FAERS Safety Report 5874662-6 (Version None)
Quarter: 2008Q3

REPORT INFORMATION
  Report Type: 
  Country: None (occurrence: None)
  Receive Date: 20080909
  Receipt Date: 20080828
  Transmission Date: 20090109
  Serious: Yes (Other)
  Sender: FDA-Public Use
  Company Number: US-CELGENEUS-163-20785-08090053

PATIENT
  Sex: Female

DRUGS (1)
  1. THALOMID [Suspect]
     Indication: LEUKAEMIA PLASMACYTIC
     Route: 048
     Dates: start: 20080206, end: 20080301

REACTIONS (3)
  - DYSPNOEA [None]
  - EOSINOPHILIA [None]
  - PNEUMONITIS [None]
